FAERS Safety Report 12747205 (Version 1)
Quarter: 2016Q3

REPORT INFORMATION
  Report Type: Spontaneous
  Country: FR (occurrence: FR)
  Receive Date: 20160915
  Receipt Date: 20160915
  Transmission Date: 20161109
  Serious: Yes (Hospitalization)
  Sender: FDA-Public Use
  Company Number: FR-SA-2016SA166955

PATIENT
  Age: 34 Year
  Sex: Male

DRUGS (16)
  1. LEVETIRACETAM. [Suspect]
     Active Substance: LEVETIRACETAM
     Route: 065
     Dates: start: 201604, end: 20160812
  2. RAMIPRIL. [Suspect]
     Active Substance: RAMIPRIL
     Route: 065
     Dates: start: 20160819
  3. RUBOZINC [Concomitant]
     Dosage: 1 CAPSULE MORNING AND EVENING
  4. RAMIPRIL. [Suspect]
     Active Substance: RAMIPRIL
     Dosage: MORNING AND EVENING
     Route: 065
     Dates: start: 201604, end: 20160812
  5. PRINCI-B [Concomitant]
     Active Substance: CYANOCOBALAMIN\PYRIDOXINE HYDROCHLORIDE\THIAMINE
     Dosage: 1 TABLET IN THE MORNING, NOON AND EVENING?STRENGTH: 1000MG
  6. SOLUPRED [Suspect]
     Active Substance: PREDNISOLONE
     Dosage: MORNING
     Route: 065
     Dates: start: 201604, end: 20160812
  7. VITAMIN B1 [Concomitant]
     Active Substance: THIAMINE HYDROCHLORIDE
     Route: 065
  8. VITAMIN B6 [Concomitant]
     Active Substance: PYRIDOXINE HYDROCHLORIDE
     Route: 065
  9. ETHAMBUTOL [Concomitant]
     Active Substance: ETHAMBUTOL HYDROCHLORIDE
     Dosage: 3 TABLETS IN THE MORNING?STRENGTH: 500MG
     Dates: start: 20160406, end: 20160812
  10. KALEORID [Concomitant]
     Active Substance: POTASSIUM CHLORIDE
     Dates: start: 201604
  11. AMLODIPINE [Suspect]
     Active Substance: AMLODIPINE BESYLATE
     Route: 065
     Dates: start: 201604
  12. AMLODIPINE [Suspect]
     Active Substance: AMLODIPINE BESYLATE
     Route: 065
     Dates: start: 20160819
  13. AMLODIPINE [Suspect]
     Active Substance: AMLODIPINE BESYLATE
     Dosage: 4MG 2 CAPSULE IN THE MORNING
     Route: 065
     Dates: end: 20160812
  14. KEPPRA [Concomitant]
     Active Substance: LEVETIRACETAM
     Dosage: 2 TABLETS MORNING AND EVENING?STRENGTH: 500MG
  15. RIFATER [Suspect]
     Active Substance: ISONIAZID\PYRAZINAMIDE\RIFAMPIN
     Indication: TUBERCULOSIS
     Dosage: MORNING AT FASTING
     Route: 048
     Dates: start: 20160406, end: 20160812
  16. SOLUPRED [Suspect]
     Active Substance: PREDNISOLONE
     Route: 065
     Dates: start: 20160819

REACTIONS (2)
  - Neutropenia [Recovering/Resolving]
  - Thrombocytopenia [Recovering/Resolving]

NARRATIVE: CASE EVENT DATE: 20160819
